FAERS Safety Report 24693578 (Version 1)
Quarter: 2024Q4

REPORT INFORMATION
  Report Type: Report from Study
  Country: KR (occurrence: KR)
  Receive Date: 20241204
  Receipt Date: 20241204
  Transmission Date: 20250114
  Serious: Yes (Other)
  Sender: TAKEDA
  Company Number: KR-TAKEDA-2024TUS119635

PATIENT
  Age: 36 Year
  Sex: Female
  Weight: 65.2 kg

DRUGS (26)
  1. VEDOLIZUMAB [Suspect]
     Active Substance: VEDOLIZUMAB
     Indication: Colitis ulcerative
     Dosage: 108 MILLIGRAM, Q2WEEKS
     Dates: start: 20230915, end: 20240108
  2. VEDOLIZUMAB [Suspect]
     Active Substance: VEDOLIZUMAB
     Dosage: 108 MILLIGRAM, Q2WEEKS
     Dates: start: 20240308
  3. VANCOZIN [Concomitant]
     Dosage: 500 MILLIGRAM, BID
     Dates: start: 20231221, end: 20240711
  4. BIOFLOR [Concomitant]
     Indication: Lactobacillus infection
     Dosage: UNK UNK, BID
     Dates: start: 20231222
  5. URSODIOL [Concomitant]
     Active Substance: URSODIOL
     Dosage: UNK UNK, TID
     Dates: start: 2016
  6. URSODIOL [Concomitant]
     Active Substance: URSODIOL
     Dosage: UNK UNK, TID
     Dates: start: 20241024
  7. Godex [Concomitant]
     Dosage: UNK UNK, BID
     Dates: start: 2020
  8. CNU [Concomitant]
     Dosage: 250 MILLIGRAM, BID
     Dates: start: 20240711, end: 20241024
  9. TRAMADOL HYDROCHLORIDE [Concomitant]
     Active Substance: TRAMADOL HYDROCHLORIDE
     Dosage: 50 MILLIGRAM
     Dates: start: 20241028, end: 20241028
  10. TRAMADOL HYDROCHLORIDE [Concomitant]
     Active Substance: TRAMADOL HYDROCHLORIDE
     Dosage: 50 MILLIGRAM
  11. CEFTRIAXONE SODIUM [Concomitant]
     Active Substance: CEFTRIAXONE SODIUM
     Dosage: UNK UNK, QD
     Dates: start: 20241027
  12. ALPIT [Concomitant]
     Dosage: 5 MILLIGRAM
  13. DONGA ACETAMINOPHEN [Concomitant]
     Dosage: 20 MILLIGRAM
  14. ACETPHEN PREMIX [Concomitant]
     Dosage: 500 MILLIGRAM
     Dates: start: 20241028, end: 20241028
  15. Plaju op [Concomitant]
     Dosage: UNK
     Dates: start: 20241027, end: 20241028
  16. NEXIUM [Concomitant]
     Active Substance: ESOMEPRAZOLE MAGNESIUM
     Dosage: 40 MILLIGRAM, QD
     Dates: start: 20241028, end: 20241028
  17. NEXIUM [Concomitant]
     Active Substance: ESOMEPRAZOLE MAGNESIUM
     Dosage: 40 MILLIGRAM, QD
     Dates: start: 20241029, end: 20241121
  18. METHYSOL [Concomitant]
     Dosage: 48 MILLIGRAM, QD
     Dates: start: 20241028, end: 20241028
  19. LECLEAN [Concomitant]
     Dosage: 133 MILLIGRAM
     Dates: start: 20241028, end: 20241028
  20. MIDAZOLAM [Concomitant]
     Active Substance: MIDAZOLAM
     Dosage: 4 MILLIGRAM
     Dates: start: 20241028, end: 20241028
  21. PREDNISOLONE [Concomitant]
     Active Substance: PREDNISOLONE
     Dosage: UNK
     Dates: start: 20241029, end: 20241029
  22. PREDNISOLONE [Concomitant]
     Active Substance: PREDNISOLONE
     Dosage: UNK
     Dates: start: 20241101, end: 20241121
  23. AMINO ACIDS\DEXTROSE\ELECTROLYTES NOS\SOYBEAN OIL\VITAMINS [Concomitant]
     Active Substance: AMINO ACIDS\DEXTROSE\ELECTROLYTES NOS\SOYBEAN OIL\VITAMINS
     Dosage: UNK
     Dates: start: 20241029, end: 20241031
  24. VITAMINS [Concomitant]
     Active Substance: VITAMINS
     Dosage: UNK UNK, QD
     Dates: start: 20241029, end: 20241031
  25. FLOSPAN [Concomitant]
     Dosage: 160 MILLIGRAM, QD
     Dates: start: 20241101, end: 20241121
  26. MESALAMINE [Concomitant]
     Active Substance: MESALAMINE
     Dosage: UNK UNK, QD
     Dates: start: 20210517

REACTIONS (1)
  - Colitis ulcerative [Recovered/Resolved]

NARRATIVE: CASE EVENT DATE: 20241027
